FAERS Safety Report 22090929 (Version 2)
Quarter: 2023Q1

REPORT INFORMATION
  Report Type: Spontaneous
  Country: FR (occurrence: FR)
  Receive Date: 20230314
  Receipt Date: 20230321
  Transmission Date: 20230417
  Serious: Yes (Other)
  Sender: FDA-Public Use
  Company Number: FR-JNJFOC-20230313953

PATIENT
  Sex: Female

DRUGS (2)
  1. TECLISTAMAB [Suspect]
     Active Substance: TECLISTAMAB
     Indication: Plasma cell myeloma
     Dosage: D1 ESCALATION DOSE
     Route: 065
     Dates: start: 20230227
  2. TECLISTAMAB [Suspect]
     Active Substance: TECLISTAMAB
     Dosage: 2ND DOSE, D4
     Route: 065
     Dates: start: 20230302

REACTIONS (3)
  - Renal failure [Unknown]
  - Cytokine release syndrome [Unknown]
  - Tumour lysis syndrome [Unknown]

NARRATIVE: CASE EVENT DATE: 20230227
